FAERS Safety Report 8261742-3 (Version None)
Quarter: 2012Q2

REPORT INFORMATION
  Report Type: 
  Country: None (occurrence: None)
  Receive Date: 20120402
  Receipt Date: 20120321
  Transmission Date: 20120825
  Serious: No
  Sender: FDA-Public Use
  Company Number: ADR-2012-00623

PATIENT
  Age: 73 Year
  Sex: Male

DRUGS (1)
  1. BACLOFEN [Suspect]
     Route: 037

REACTIONS (2)
  - DYSPHAGIA [None]
  - PNEUMONIA [None]
